FAERS Safety Report 6719912-9 (Version None)
Quarter: 2010Q2

REPORT INFORMATION
  Report Type: 
  Country: None (occurrence: None)
  Receive Date: 20100511
  Receipt Date: 20100430
  Transmission Date: 20101027
  Serious: Yes (Other)
  Sender: FDA-Public Use
  Company Number: US-JNJFOC-20100500626

PATIENT
  Sex: Female
  Weight: 48.08 kg

DRUGS (6)
  1. REMICADE [Suspect]
     Indication: PSORIATIC ARTHROPATHY
     Dosage: DOSE INCREASED TO 7.5 MG/KG Q6WKS IN JAN-2010
     Route: 042
  2. REMICADE [Suspect]
     Route: 042
  3. METHOTREXATE [Concomitant]
     Route: 058
  4. FOLIC ACID [Concomitant]
  5. ADVIL [Concomitant]
  6. VITAMIN TAB [Concomitant]

REACTIONS (3)
  - COCCIDIOIDOMYCOSIS [None]
  - LUNG INFECTION [None]
  - NASOPHARYNGITIS [None]
